FAERS Safety Report 20571818 (Version 3)
Quarter: 2022Q2

REPORT INFORMATION
  Report Type: Report from Study
  Country: CA (occurrence: CA)
  Receive Date: 20220309
  Receipt Date: 20220509
  Transmission Date: 20220720
  Serious: Yes (Hospitalization, Other)
  Sender: FDA-Public Use
  Company Number: CA-ABBVIE-22K-028-4306994-00

PATIENT
  Age: 59 Year
  Sex: Male
  Weight: 78.542 kg

DRUGS (1)
  1. HUMIRA [Suspect]
     Active Substance: ADALIMUMAB
     Indication: Crohn^s disease
     Route: 058
     Dates: start: 20200508

REACTIONS (2)
  - Adhesion [Unknown]
  - Small intestinal resection [Unknown]

NARRATIVE: CASE EVENT DATE: 20211201
